FAERS Safety Report 6828042-7 (Version None)
Quarter: 2010Q3

REPORT INFORMATION
  Report Type: 
  Country: None (occurrence: None)
  Receive Date: 20100708
  Receipt Date: 20100708
  Transmission Date: 20110219
  Serious: Yes (Life-Threatening, Hospitalization, Disabling)
  Sender: FDA-Public Use
  Company Number: None

PATIENT
  Age: 1 Year
  Sex: Male
  Weight: 10 kg

DRUGS (1)
  1. WARFARIN 1 MG UPSHER-SMITH [Suspect]
     Indication: MITRAL VALVE REPLACEMENT
     Dosage: 4.5 MG DAILY PO
     Route: 048
     Dates: start: 20100613, end: 20100628

REACTIONS (4)
  - EPISTAXIS [None]
  - HAEMOTHORAX [None]
  - INTERNATIONAL NORMALISED RATIO INCREASED [None]
  - RESPIRATORY DISTRESS [None]
